FAERS Safety Report 9776380 (Version 2)
Quarter: 2014Q1

REPORT INFORMATION
  Report Type: Spontaneous
  Country: DE (occurrence: DE)
  Receive Date: 20131220
  Receipt Date: 20140303
  Transmission Date: 20141002
  Serious: Yes (Other)
  Sender: FDA-Public Use
  Company Number: DE-B.I. PHARMACEUTICALS,INC./RIDGEFIELD-2013-BI-42855DE

PATIENT
  Age: 84 Year
  Sex: Male
  Weight: 79 kg

DRUGS (7)
  1. PRADAXA [Suspect]
     Indication: ATRIAL FIBRILLATION
     Dosage: 220 MG
     Route: 065
     Dates: start: 2012
  2. NORVASK [Concomitant]
     Route: 065
  3. VALSARTAN COMP. [Concomitant]
     Route: 065
  4. FUROSEMID [Concomitant]
     Route: 065
  5. DIBLOCIN [Concomitant]
     Route: 065
  6. METFORMIN [Concomitant]
     Dosage: 2000 MG
     Route: 065
  7. VALSARTAN [Concomitant]
     Dosage: DOSE PER APPLICATION: 80
     Route: 065

REACTIONS (11)
  - Macular degeneration [Not Recovered/Not Resolved]
  - Anaemia [Not Recovered/Not Resolved]
  - Fatigue [Not Recovered/Not Resolved]
  - Dyspnoea [Not Recovered/Not Resolved]
  - Local swelling [Not Recovered/Not Resolved]
  - General physical condition abnormal [Unknown]
  - Asthenia [Unknown]
  - Fatigue [Unknown]
  - Haemoglobin decreased [Unknown]
  - Sleep disorder [Unknown]
  - Visual acuity reduced [Unknown]
